FAERS Safety Report 7548949-5 (Version None)
Quarter: 2011Q2

REPORT INFORMATION
  Report Type: 
  Country: None (occurrence: None)
  Receive Date: 20110615
  Receipt Date: 20110613
  Transmission Date: 20111010
  Serious: Yes (Hospitalization, Other)
  Sender: FDA-Public Use
  Company Number: JP-PFIZER INC-2011120141

PATIENT
  Sex: Male

DRUGS (2)
  1. LOXONIN [Suspect]
     Indication: POST HERPETIC NEURALGIA
     Dosage: 180MG/DAY
     Route: 048
     Dates: end: 20110530
  2. LYRICA [Suspect]
     Indication: POST HERPETIC NEURALGIA
     Dosage: 150MG/DAY
     Route: 048
     Dates: start: 20110523, end: 20110530

REACTIONS (2)
  - PLEURAL EFFUSION [None]
  - CARDIAC FAILURE [None]
